FAERS Safety Report 9914351 (Version 1)
Quarter: 2014Q1

REPORT INFORMATION
  Report Type: Spontaneous
  Country: FR (occurrence: FR)
  Receive Date: 20140220
  Receipt Date: 20140220
  Transmission Date: 20141002
  Serious: Yes (Hospitalization, Other)
  Sender: FDA-Public Use
  Company Number: FR-ASTRAZENECA-2014SE11160

PATIENT
  Age: 28675 Day
  Sex: Female

DRUGS (4)
  1. CRESTOR [Suspect]
     Indication: HYPERCHOLESTEROLAEMIA
     Route: 048
  2. PROLIA [Suspect]
     Indication: OSTEOPOROSIS
     Route: 058
     Dates: start: 20131007
  3. EVISTA [Concomitant]
     Indication: OSTEOPOROSIS
     Route: 048
     Dates: start: 2012, end: 2013
  4. SPAGULAX [Concomitant]
     Indication: CONSTIPATION
     Route: 048

REACTIONS (14)
  - Paraesthesia [Not Recovered/Not Resolved]
  - Oedema peripheral [Recovered/Resolved]
  - Amyotrophy [Unknown]
  - Hypertension [Unknown]
  - Nausea [Unknown]
  - Dysgeusia [Unknown]
  - Pain [Unknown]
  - Hyporeflexia [Unknown]
  - Back pain [Unknown]
  - Sciatica [Unknown]
  - Constipation [Unknown]
  - Abdominal pain [Unknown]
  - Headache [Recovered/Resolved]
  - Pain in extremity [Recovered/Resolved]
